FAERS Safety Report 7583741-7 (Version None)
Quarter: 2011Q2

REPORT INFORMATION
  Report Type: 
  Country: None (occurrence: None)
  Receive Date: 20110630
  Receipt Date: 20110627
  Transmission Date: 20111010
  Serious: Yes (Death)
  Sender: FDA-Public Use
  Company Number: SE-ROCHE-782968

PATIENT
  Age: 61 Year
  Sex: Female

DRUGS (1)
  1. XELODA [Suspect]
     Dosage: REPORTED AS XELODA FC TAB 500 MG, DOSE REPORTED 2 GMD
     Route: 048
     Dates: end: 20110402

REACTIONS (2)
  - VENTRICULAR TACHYCARDIA [None]
  - DEATH [None]
